FAERS Safety Report 10179461 (Version 1)
Quarter: 2014Q2

REPORT INFORMATION
  Report Type: Spontaneous
  Country: US (occurrence: None)
  Receive Date: 20140515
  Receipt Date: 20140515
  Transmission Date: 20141212
  Serious: Yes (Hospitalization)
  Sender: FDA-Public Use
  Company Number: UTC-045611

PATIENT
  Age: 47 Year
  Sex: Female

DRUGS (2)
  1. REMODULIN [Suspect]
     Indication: PULMONARY ARTERIAL HYPERTENSION
     Dosage: (0.054 UG/KG, 1 IN 1 MIN)?
     Route: 058
     Dates: start: 200901
  2. REVATIO (SILDENAFIL CITRATE) [Concomitant]

REACTIONS (4)
  - Device issue [None]
  - Drug dose omission [None]
  - Dyspnoea [None]
  - Condition aggravated [None]
